FAERS Safety Report 5005830-3 (Version None)
Quarter: 2006Q2

REPORT INFORMATION
  Report Type: 
  Country: None (occurrence: None)
  Receive Date: 20060517
  Receipt Date: 20060517
  Transmission Date: 20061013
  Serious: Yes (Hospitalization)
  Sender: FDA-Public Use
  Company Number: None

PATIENT
  Age: 80 Year
  Sex: Male

DRUGS (7)
  1. FUROSEMIDE [Suspect]
     Dosage: 80MG  BID
     Dates: start: 19981001
  2. METOLAZONE [Suspect]
     Dosage: 5MG  QD
     Dates: start: 20060113
  3. FOSINOPRIL SODIUM [Concomitant]
  4. POTASSIUM CHLORIDE [Concomitant]
  5. LORATADINE [Concomitant]
  6. SALSALATE [Concomitant]
  7. FELODIPINE [Concomitant]

REACTIONS (1)
  - HYPOKALAEMIA [None]
